FAERS Safety Report 4330371-6 (Version None)
Quarter: 2004Q2

REPORT INFORMATION
  Report Type: 
  Country: None (occurrence: None)
  Receive Date: 20040401
  Receipt Date: 20040401
  Transmission Date: 20050107
  Serious: Yes (Hospitalization)
  Sender: FDA-Public Use
  Company Number: None

PATIENT
  Age: 15 Year
  Sex: Male
  Weight: 65 kg

DRUGS (12)
  1. METOCLOPRAMIDE [Suspect]
     Indication: NAUSEA
     Dosage: 10 MG QID ORAL
     Route: 048
     Dates: start: 20040101, end: 20040217
  2. METOCLOPRAMIDE [Suspect]
     Indication: VOMITING
     Dosage: 10 MG QID ORAL
     Route: 048
     Dates: start: 20040101, end: 20040217
  3. HALOPERIDOL [Suspect]
     Indication: DRUG WITHDRAWAL SYNDROME
     Dosage: 5MG BID ORAL
     Route: 048
     Dates: start: 20040123, end: 20040215
  4. HALOPERIDOL [Suspect]
     Indication: SEDATION
     Dosage: 5MG BID ORAL
     Route: 048
     Dates: start: 20040123, end: 20040215
  5. CATAPRES [Concomitant]
  6. DIAZEPAM [Concomitant]
  7. FLOVENT [Concomitant]
  8. LACTULOSE [Concomitant]
  9. METHADONE TAPER [Concomitant]
  10. MIRALAX [Concomitant]
  11. MYCOSTATIN [Concomitant]
  12. PEPCID [Concomitant]

REACTIONS (5)
  - COGWHEEL RIGIDITY [None]
  - EYE MOVEMENT DISORDER [None]
  - HYPERTONIA [None]
  - SENSORY LOSS [None]
  - TREMOR [None]
